FAERS Safety Report 6653024-8 (Version None)
Quarter: 2010Q1

REPORT INFORMATION
  Report Type: 
  Country: None (occurrence: None)
  Receive Date: 20100311
  Receipt Date: 20090201
  Transmission Date: 20100710
  Serious: Yes (Hospitalization)
  Sender: FDA-Public Use
  Company Number: 2008011063

PATIENT
  Age: 65 Year
  Sex: Female
  Weight: 59.4 kg

DRUGS (6)
  1. NIFEDIPINE EXTENDED RELEASE (NIFEDIPINE) MODIFIED-RELEASE TABLET [Suspect]
     Indication: HYPERTENSION
     Dosage: QD, ORAL
     Route: 048
     Dates: start: 20080117, end: 20080126
  2. NIFEDIPINE EXTENDED RELEASE (NIFEDIPINE) MODIFIED-RELEASE TABLET [Suspect]
     Indication: HYPERTENSION
     Dosage: QD, ORAL
     Route: 048
     Dates: start: 20080126, end: 20080131
  3. COREG [Concomitant]
  4. VALSARTAN [Concomitant]
  5. ASPIRIN [Concomitant]
  6. ALPRAZOLAM [Concomitant]

REACTIONS (3)
  - HEADACHE [None]
  - MIGRAINE [None]
  - PARAESTHESIA [None]
